FAERS Safety Report 9255712 (Version 2)
Quarter: 2013Q3

REPORT INFORMATION
  Report Type: Spontaneous
  Country: IT (occurrence: None)
  Receive Date: 20130418
  Receipt Date: 20130814
  Transmission Date: 20140515
  Serious: Yes (Hospitalization)
  Sender: FDA-Public Use
  Company Number: AUR-APL-2013-03133

PATIENT
  Age: 60 Year
  Sex: Female

DRUGS (5)
  1. CITALOPRAM (CITALOPRAM) [Suspect]
     Indication: DEPRESSION
     Dosage: TOTAL
     Route: 048
     Dates: start: 20130322, end: 20130322
  2. IPAMIX (INDAPAMIDE) [Concomitant]
  3. XANAX (ALPRAZOLAM) [Concomitant]
  4. FLUOXETINE (FLUOXETINE) [Concomitant]
  5. METOPROLOL TARTRATE (METOPROLOL TARTRATE) (TABLETS) (METOPROLOL TARTRATE) [Concomitant]

REACTIONS (5)
  - Blood pressure increased [None]
  - Dizziness [None]
  - Hypokalaemia [None]
  - Malaise [None]
  - Tremor [None]
